FAERS Safety Report 5431250-3 (Version None)
Quarter: 2007Q3

REPORT INFORMATION
  Report Type: 
  Country: None (occurrence: None)
  Receive Date: 20070830
  Receipt Date: 20070823
  Transmission Date: 20080115
  Serious: Yes (Other)
  Sender: FDA-Public Use
  Company Number: GB-AMGEN-US240271

PATIENT
  Age: 60 Year
  Sex: Female
  Weight: 77 kg

DRUGS (5)
  1. ENBREL [Suspect]
     Indication: DRUG USE FOR UNKNOWN INDICATION
     Route: 058
     Dates: start: 20070201
  2. CODEINE PHOSPHATE AND ACETAMINOPHEN [Concomitant]
     Indication: PAIN
     Dosage: UNKNOWN
  3. METHOTREXATE SODIUM [Concomitant]
     Route: 058
     Dates: start: 20000101
  4. FOLIC ACID [Concomitant]
     Route: 048
     Dates: start: 20000101
  5. MELOXICAM [Concomitant]
     Route: 048
     Dates: start: 20000101

REACTIONS (3)
  - HERPES ZOSTER [None]
  - PRURITUS [None]
  - SOFT TISSUE INFECTION [None]
